FAERS Safety Report 16735702 (Version 1)
Quarter: 2019Q3

REPORT INFORMATION
  Report Type: Spontaneous
  Country: US (occurrence: US)
  Receive Date: 20190708
  Receipt Date: 20190708
  Transmission Date: 20191005
  Serious: Yes (Hospitalization)
  Sender: FDA-Public Use
  Company Number: None

PATIENT
  Age: 61 Year
  Sex: Male

DRUGS (1)
  1. REVLIMID [Suspect]
     Active Substance: LENALIDOMIDE
     Indication: PLASMA CELL MYELOMA
     Dosage: ?          OTHER DOSE:2.5MG;?ON HOLD
     Route: 048
     Dates: start: 201901

REACTIONS (2)
  - Therapy cessation [None]
  - Pulmonary embolism [None]

NARRATIVE: CASE EVENT DATE: 20190610
